FAERS Safety Report 25685988 (Version 2)
Quarter: 2025Q3

REPORT INFORMATION
  Report Type: Spontaneous
  Country: US (occurrence: US)
  Receive Date: 20250815
  Receipt Date: 20250827
  Transmission Date: 20251021
  Serious: Yes (Other)
  Sender: TAIHO ONCOLOGY INC
  Company Number: US-TAIHOP-2025-008570

PATIENT
  Sex: Female

DRUGS (1)
  1. LYTGOBI [Suspect]
     Active Substance: FUTIBATINIB
     Indication: Cholangiocarcinoma
     Dosage: FORM STRENGTH UNKNOWN
     Route: 048
     Dates: start: 20250419, end: 20250523

REACTIONS (3)
  - Calciphylaxis [Recovering/Resolving]
  - Hyperphosphataemia [Recovering/Resolving]
  - Fluid retention [Unknown]
